FAERS Safety Report 4501274-9 (Version None)
Quarter: 2004Q4

REPORT INFORMATION
  Report Type: 
  Country: None (occurrence: None)
  Receive Date: 20040927
  Receipt Date: 20030829
  Transmission Date: 20050328
  Serious: No
  Sender: FDA-Public Use
  Company Number: USA030945840

PATIENT
  Age: 34 Year
  Sex: Male
  Weight: 82 kg

DRUGS (1)
  1. STRATTERA [Suspect]
     Indication: ATTENTION DEFICIT/HYPERACTIVITY DISORDER
     Dosage: 80 MG DAY
     Dates: start: 20030101

REACTIONS (5)
  - EJACULATION DISORDER [None]
  - FATIGUE [None]
  - HYPERTENSION [None]
  - MUSCULAR WEAKNESS [None]
  - PROSTATIC DISORDER [None]
